FAERS Safety Report 9822908 (Version 2)
Quarter: 2014Q1

REPORT INFORMATION
  Report Type: Spontaneous
  Country: US (occurrence: US)
  Receive Date: 20140116
  Receipt Date: 20140116
  Transmission Date: 20141002
  Serious: No
  Sender: FDA-Public Use
  Company Number: US-GILEAD-2010-0032986

PATIENT
  Age: 69 Year
  Sex: Female
  Weight: 104.33 kg

DRUGS (10)
  1. LETAIRIS [Suspect]
     Indication: PULMONARY ARTERIAL HYPERTENSION
     Route: 048
     Dates: start: 20100811, end: 20101210
  2. PRINIVIL [Concomitant]
  3. ASPIRIN [Concomitant]
  4. OXYGEN [Concomitant]
  5. CRESTOR [Concomitant]
  6. TYLENOL [Concomitant]
  7. TRAMADOL [Concomitant]
  8. VALPROIC ACID [Concomitant]
  9. FOSAMAX [Concomitant]
  10. XANAX [Concomitant]

REACTIONS (3)
  - Urticaria [Unknown]
  - Hot flush [Unknown]
  - Nasal congestion [Unknown]
